FAERS Safety Report 8133135-0 (Version None)
Quarter: 2012Q1

REPORT INFORMATION
  Report Type: 
  Country: None (occurrence: None)
  Receive Date: 20120213
  Receipt Date: 20120109
  Transmission Date: 20120608
  Serious: Yes (Hospitalization)
  Sender: FDA-Public Use
  Company Number: AU-JNJFOC-20111102590

PATIENT
  Sex: Male
  Weight: 76 kg

DRUGS (26)
  1. OXYCONTIN [Suspect]
     Indication: PAIN
     Route: 065
     Dates: start: 20120104
  2. ONDANSETRON [Concomitant]
     Indication: VOMITING
     Route: 065
     Dates: start: 20111226, end: 20111227
  3. ONDANSETRON [Concomitant]
     Route: 065
     Dates: start: 20111209, end: 20111209
  4. COLOXYL AND SENNA [Concomitant]
     Indication: CONSTIPATION
     Route: 065
     Dates: start: 20111223, end: 20111227
  5. COLOXYL AND SENNA [Concomitant]
     Route: 065
     Dates: start: 20111209, end: 20111212
  6. OXYCODONE HCL [Concomitant]
     Indication: PAIN
     Route: 065
     Dates: start: 20111222, end: 20111227
  7. AMPICILLIN [Concomitant]
     Indication: BACK PAIN
     Route: 065
     Dates: start: 20111102, end: 20111103
  8. METOCLOPRAMIDE [Concomitant]
     Indication: VOMITING
     Route: 065
     Dates: start: 20111222, end: 20111223
  9. FENTANYL [Concomitant]
     Route: 065
     Dates: start: 20111223, end: 20111223
  10. ABIRATERONE ACETATE [Suspect]
     Route: 048
     Dates: start: 20111214
  11. ABIRATERONE ACETATE [Suspect]
     Route: 048
     Dates: start: 20111121
  12. CEFTRIAXONE [Concomitant]
     Indication: BACK PAIN
     Route: 065
     Dates: start: 20111102, end: 20111103
  13. GLYCERINE [Concomitant]
     Indication: CONSTIPATION
     Route: 065
     Dates: start: 20111210, end: 20111210
  14. ACETAMINOPHEN [Concomitant]
     Indication: BACK PAIN
     Route: 065
     Dates: start: 20111102, end: 20111103
  15. ONDANSETRON [Concomitant]
     Route: 065
     Dates: start: 20111222, end: 20111223
  16. METOCLOPRAMIDE [Concomitant]
     Route: 065
     Dates: start: 20111223, end: 20111227
  17. OMEPRAZOLE [Concomitant]
     Indication: VOMITING
     Route: 065
     Dates: start: 20111223, end: 20111227
  18. FENTANYL [Concomitant]
     Indication: PAIN
     Route: 065
     Dates: start: 20111224, end: 20111227
  19. PREDNISOLONE [Suspect]
     Indication: PROSTATE CANCER METASTATIC
     Route: 065
     Dates: start: 20111017
  20. METOCLOPRAMIDE [Concomitant]
     Route: 065
     Dates: start: 20111209, end: 20111212
  21. PANADOL OSTEO [Concomitant]
     Indication: PAIN
     Route: 065
     Dates: start: 20111222, end: 20111227
  22. MOVIPREP [Concomitant]
     Indication: CONSTIPATION
     Route: 065
     Dates: start: 20111222, end: 20111222
  23. OMEPRAZOLE [Concomitant]
     Route: 065
     Dates: start: 20111209, end: 20111212
  24. CEPHALEXIN [Concomitant]
     Indication: VOMITING
     Route: 065
     Dates: start: 20111224, end: 20111227
  25. ABIRATERONE ACETATE [Suspect]
     Indication: PROSTATE CANCER METASTATIC
     Route: 048
     Dates: start: 20111017, end: 20111113
  26. NORMAL SALINE SOLUTION [Concomitant]
     Indication: VOMITING
     Route: 065
     Dates: start: 20111222, end: 20111222

REACTIONS (3)
  - HYPERKALAEMIA [None]
  - BACK PAIN [None]
  - VOMITING [None]
